FAERS Safety Report 15309722 (Version 1)
Quarter: 2018Q3

REPORT INFORMATION
  Report Type: Spontaneous
  Country: US (occurrence: US)
  Receive Date: 20180813
  Receipt Date: 20180813
  Transmission Date: 20181010
  Serious: No
  Sender: FDA-Public Use
  Company Number: None

PATIENT
  Sex: Male

DRUGS (1)
  1. STIVARGA [Suspect]
     Active Substance: REGORAFENIB
     Indication: SOFT TISSUE SARCOMA
     Dosage: 2 TABLETS DAILY FOR 21 DAYS ON AND 7 DAYS OFF BY MOUTH
     Route: 048
     Dates: start: 20180127

REACTIONS (2)
  - Dyspnoea [None]
  - Muscle spasms [None]
